FAERS Safety Report 13445316 (Version 1)
Quarter: 2017Q2

REPORT INFORMATION
  Report Type: Spontaneous
  Country: IL (occurrence: IL)
  Receive Date: 20170414
  Receipt Date: 20170414
  Transmission Date: 20170830
  Serious: Yes (Other)
  Sender: FDA-Public Use
  Company Number: IL-PFIZER INC-2017159303

PATIENT
  Age: 4 Year
  Sex: Male

DRUGS (5)
  1. ZINC. [Concomitant]
     Active Substance: ZINC
     Indication: PARENTERAL NUTRITION
     Dosage: UNK
     Route: 051
  2. DEXTROSE. [Concomitant]
     Active Substance: DEXTROSE
     Indication: PARENTERAL NUTRITION
     Dosage: UNK, 10%
     Route: 051
  3. TRAVASOL [Suspect]
     Active Substance: ALANINE\ARGININE\GLYCINE\HISTIDINE\ISOLEUCINE\LEUCINE\LYSINE HYDROCHLORIDE\METHIONINE\PHENYLALANINE\PROLINE\SERINE\THREONINE\TRYPTOPHAN\TYROSINE\VALINE
     Indication: PARENTERAL NUTRITION
     Dosage: UNK,  2.75%
     Route: 051
  4. CALCIUM [Concomitant]
     Active Substance: CALCIUM
     Indication: PARENTERAL NUTRITION
     Dosage: UNK
     Route: 051
  5. MAGNESIUM SULFATE. [Suspect]
     Active Substance: MAGNESIUM SULFATE
     Indication: PARENTERAL NUTRITION
     Dosage: UNK
     Route: 051

REACTIONS (1)
  - Anaphylactic reaction [Recovered/Resolved]
